FAERS Safety Report 4969468-6 (Version None)
Quarter: 2006Q2

REPORT INFORMATION
  Report Type: 
  Country: None (occurrence: None)
  Receive Date: 20060411
  Receipt Date: 20060330
  Transmission Date: 20061013
  Serious: Yes (Other)
  Sender: FDA-Public Use
  Company Number: GB-AVENTIS-200613646GDDC

PATIENT
  Age: 58 Year
  Sex: Female

DRUGS (3)
  1. LANTUS [Suspect]
     Indication: DIABETES MELLITUS NON-INSULIN-DEPENDENT
     Route: 058
     Dates: start: 20051101
  2. AUTOPEN INSULIN INJECTION PEN [Suspect]
  3. NOVORAPID [Suspect]
     Indication: DIABETES MELLITUS NON-INSULIN-DEPENDENT
     Dates: start: 20051212

REACTIONS (2)
  - ANGINA PECTORIS [None]
  - DYSPNOEA [None]
